FAERS Safety Report 5663424-0 (Version None)
Quarter: 2008Q1

REPORT INFORMATION
  Report Type: 
  Country: None (occurrence: None)
  Receive Date: 20080310
  Receipt Date: 20080228
  Transmission Date: 20080703
  Serious: Yes (Hospitalization, Other)
  Sender: FDA-Public Use
  Company Number: 2008AP000585

PATIENT
  Age: 60 Year
  Sex: Male

DRUGS (4)
  1. DESMOPRESSIN ACETATE [Suspect]
     Indication: DIABETES INSIPIDUS
     Dosage: QD; NASAL; 5ML; NAS
     Route: 045
     Dates: start: 20050601, end: 20050801
  2. DESMOPRESSIN ACETATE [Suspect]
     Indication: HYPOPITUITARISM
     Dosage: QD; NASAL; 5ML; NAS
     Route: 045
     Dates: start: 20050601, end: 20050801
  3. DESMOPRESSIN ACETATE [Suspect]
     Indication: DIABETES INSIPIDUS
     Dosage: QD; NASAL; 5ML; NAS
     Route: 045
     Dates: start: 20080101, end: 20080206
  4. DESMOPRESSIN ACETATE [Suspect]
     Indication: HYPOPITUITARISM
     Dosage: QD; NASAL; 5ML; NAS
     Route: 045
     Dates: start: 20080101, end: 20080206

REACTIONS (5)
  - DRUG INEFFECTIVE [None]
  - ELECTROLYTE IMBALANCE [None]
  - KIDNEY INFECTION [None]
  - PHARMACEUTICAL PRODUCT COMPLAINT [None]
  - URINE OUTPUT INCREASED [None]
